FAERS Safety Report 17861474 (Version 1)
Quarter: 2020Q2

REPORT INFORMATION
  Report Type: Spontaneous
  Country: BR (occurrence: BR)
  Receive Date: 20200604
  Receipt Date: 20200604
  Transmission Date: 20200714
  Serious: Yes (Life-Threatening)
  Sender: FDA-Public Use
  Company Number: BR-GLAXOSMITHKLINE-BR2020AMR092407

PATIENT
  Age: 56 Year
  Sex: Male

DRUGS (2)
  1. ZINNAT [Suspect]
     Active Substance: CEFUROXIME
     Indication: PNEUMONIA
     Dosage: 500 MGX 14 TABS
     Route: 048
  2. ZINNAT [Suspect]
     Active Substance: CEFUROXIME
     Indication: PULMONARY EMBOLISM

REACTIONS (9)
  - Drug ineffective [Unknown]
  - Product use in unapproved indication [Unknown]
  - Swelling face [Unknown]
  - Malaise [Unknown]
  - Social problem [Unknown]
  - Product prescribing issue [Unknown]
  - Product complaint [Unknown]
  - Drug hypersensitivity [Unknown]
  - Blister [Unknown]
